FAERS Safety Report 11312545 (Version 1)
Quarter: 2015Q3

REPORT INFORMATION
  Report Type: Spontaneous
  Country: CA (occurrence: CA)
  Receive Date: 20150727
  Receipt Date: 20150727
  Transmission Date: 20151125
  Serious: Yes (Death)
  Sender: FDA-Public Use
  Company Number: US-ASTRAZENECA-2015SE71315

PATIENT
  Age: 44 Day
  Sex: Female
  Weight: 2 kg

DRUGS (2)
  1. PALIVIZUMAB [Suspect]
     Active Substance: PALIVIZUMAB
     Indication: ANTIVIRAL PROPHYLAXIS
     Route: 030
  2. VITAMIN D (NON-ABBVIE) [Concomitant]
     Indication: PRODUCT USED FOR UNKNOWN INDICATION

REACTIONS (5)
  - Blood lactic acid increased [Fatal]
  - Carbon dioxide increased [Fatal]
  - Haemoglobin decreased [Fatal]
  - Streptococcus test positive [Fatal]
  - PO2 decreased [Fatal]
